FAERS Safety Report 7437975-2 (Version None)
Quarter: 2011Q2

REPORT INFORMATION
  Report Type: 
  Country: None (occurrence: None)
  Receive Date: 20110426
  Receipt Date: 20110413
  Transmission Date: 20111010
  Serious: Yes (Other)
  Sender: FDA-Public Use
  Company Number: US-JNJFOC-20110208609

PATIENT
  Sex: Female
  Weight: 63.05 kg

DRUGS (5)
  1. LOMOTIL [Concomitant]
     Indication: PRODUCT USED FOR UNKNOWN INDICATION
  2. ALL OTHER THERAPEUTIC PRODUCTS [Concomitant]
  3. REMICADE [Suspect]
     Indication: CROHN'S DISEASE
     Route: 042
  4. MULTI-VITAMINS [Concomitant]
  5. VITAMIN E (TOCOPHERYL ACETATE) [Concomitant]

REACTIONS (1)
  - CEREBROVASCULAR ACCIDENT [None]
